FAERS Safety Report 13591149 (Version 1)
Quarter: 2017Q2

REPORT INFORMATION
  Report Type: Spontaneous
  Country: GB (occurrence: GB)
  Receive Date: 20170529
  Receipt Date: 20170529
  Transmission Date: 20170830
  Serious: Yes (Other)
  Sender: FDA-Public Use
  Company Number: GB-TEVA-770817ACC

PATIENT
  Sex: Female

DRUGS (1)
  1. FOLIC ACID. [Suspect]
     Active Substance: FOLIC ACID

REACTIONS (3)
  - Vitamin B12 deficiency [Unknown]
  - Drug prescribing error [Unknown]
  - Symptom masked [Unknown]
